FAERS Safety Report 5164451-2 (Version None)
Quarter: 2006Q4

REPORT INFORMATION
  Report Type: 
  Country: None (occurrence: None)
  Receive Date: 20061127
  Receipt Date: 20061127
  Transmission Date: 20070319
  Serious: Yes (Hospitalization)
  Sender: FDA-Public Use
  Company Number: None

PATIENT
  Age: 80 Year
  Sex: Female
  Weight: 71.2147 kg

DRUGS (10)
  1. REMODULIN [Suspect]
     Indication: PULMONARY HYPERTENSION
     Dosage: 32NG/KG/MIN CONTINUOUS  SQ
     Route: 058
     Dates: start: 20060601
  2. COUMADIN [Concomitant]
  3. RYTHMOL [Concomitant]
  4. DYAZIDE [Concomitant]
  5. IRON SUPPLEMENTS [Concomitant]
  6. DIOVAN [Concomitant]
  7. LIPITOR [Concomitant]
  8. FOSAMAX [Concomitant]
  9. CALCIUM [Concomitant]
  10. PROSOM [Concomitant]

REACTIONS (8)
  - ABDOMINAL PAIN LOWER [None]
  - ASTHENIA [None]
  - ERYTHEMA [None]
  - INJECTION SITE ABSCESS [None]
  - PSEUDOMONAS INFECTION [None]
  - PYREXIA [None]
  - TENDERNESS [None]
  - WEIGHT DECREASED [None]
